FAERS Safety Report 5960263-8 (Version None)
Quarter: 2008Q4

REPORT INFORMATION
  Report Type: 
  Country: None (occurrence: None)
  Receive Date: 20081118
  Receipt Date: 20081118
  Transmission Date: 20090506
  Serious: Yes (Other)
  Sender: FDA-Public Use
  Company Number: None

PATIENT
  Age: 68 Year
  Sex: Female
  Weight: 68.0396 kg

DRUGS (1)
  1. CIPROFLOXACIN HCL [Suspect]
     Indication: URINARY TRACT INFECTION
     Dosage: 250 MG TWICE DAILY PO
     Route: 048
     Dates: start: 20080705, end: 20080708

REACTIONS (3)
  - INSOMNIA [None]
  - TENDONITIS [None]
  - WALKING AID USER [None]
